FAERS Safety Report 8170991-4 (Version None)
Quarter: 2012Q1

REPORT INFORMATION
  Report Type: 
  Country: None (occurrence: None)
  Receive Date: 20120104
  Receipt Date: 20111118
  Transmission Date: 20120608
  Serious: No
  Sender: FDA-Public Use
  Company Number: 2011HGS-002641

PATIENT
  Age: 59 Year
  Sex: Male
  Weight: 108.8633 kg

DRUGS (1)
  1. BENLYSTA [Suspect]
     Indication: SYSTEMIC LUPUS ERYTHEMATOSUS
     Dosage: 10 MG/KG, 1 IN 4 WK, INTRAVENOUS DRIP
     Route: 041
     Dates: start: 20111012, end: 20111012

REACTIONS (10)
  - EYE SWELLING [None]
  - COUGH [None]
  - HYPOAESTHESIA ORAL [None]
  - LIP SWELLING [None]
  - OEDEMA PERIPHERAL [None]
  - HYPOTENSION [None]
  - THROAT IRRITATION [None]
  - HYPERSENSITIVITY [None]
  - RASH GENERALISED [None]
  - DYSPNOEA [None]
